FAERS Safety Report 17731041 (Version 3)
Quarter: 2021Q2

REPORT INFORMATION
  Report Type: Spontaneous
  Country: US (occurrence: US)
  Receive Date: 20200430
  Receipt Date: 20210628
  Transmission Date: 20210716
  Serious: Yes (Other)
  Sender: FDA-Public Use
  Company Number: US-GILEAD-2020-0462632

PATIENT
  Age: 36 Year
  Sex: Male
  Weight: 106.59 kg

DRUGS (16)
  1. CHLORPHENAMINE;HYDROCODONE [Concomitant]
  2. AMLODIPINE [Concomitant]
     Active Substance: AMLODIPINE BESYLATE
  3. HYDRALAZINE [Concomitant]
     Active Substance: HYDRALAZINE HYDROCHLORIDE
  4. PREZISTA [Concomitant]
     Active Substance: DARUNAVIR ETHANOLATE
  5. COMPLERA [Suspect]
     Active Substance: EMTRICITABINE\RILPIVIRINE HYDROCHLORIDE\TENOFOVIR DISOPROXIL FUMARATE
     Indication: HIV INFECTION
     Dosage: UNK
     Route: 048
     Dates: start: 201403, end: 201810
  6. BACTRIM [Concomitant]
     Active Substance: SULFAMETHOXAZOLE\TRIMETHOPRIM
  7. ABACAVIR. [Concomitant]
     Active Substance: ABACAVIR
  8. MINOXIDIL. [Concomitant]
     Active Substance: MINOXIDIL
  9. COREG [Concomitant]
     Active Substance: CARVEDILOL
  10. BARACLUDE [Concomitant]
     Active Substance: ENTECAVIR
  11. ALDARA [Concomitant]
     Active Substance: IMIQUIMOD
  12. EPIVIR [Concomitant]
     Active Substance: LAMIVUDINE
  13. RITONAVIR. [Concomitant]
     Active Substance: RITONAVIR
  14. COMPLERA [Suspect]
     Active Substance: EMTRICITABINE\RILPIVIRINE HYDROCHLORIDE\TENOFOVIR DISOPROXIL FUMARATE
     Dosage: UNK
     Route: 048
     Dates: start: 20140821, end: 201812
  15. LABETALOL [Concomitant]
     Active Substance: LABETALOL\LABETALOL HYDROCHLORIDE
  16. NORVIR [Concomitant]
     Active Substance: RITONAVIR

REACTIONS (7)
  - End stage renal disease [Not Recovered/Not Resolved]
  - Renal injury [Unknown]
  - Acute kidney injury [Unknown]
  - Dental caries [Unknown]
  - Depression [Not Recovered/Not Resolved]
  - Chronic kidney disease [Unknown]
  - Renal failure [Unknown]

NARRATIVE: CASE EVENT DATE: 201810
